FAERS Safety Report 9724980 (Version 1)
Quarter: 2013Q4

REPORT INFORMATION
  Report Type: Report from Study
  Country: VE (occurrence: VE)
  Receive Date: 20131202
  Receipt Date: 20131202
  Transmission Date: 20140711
  Serious: Yes (Other)
  Sender: FDA-Public Use
  Company Number: PHHY2013VE139133

PATIENT
  Age: 81 Year
  Sex: Female

DRUGS (4)
  1. ACLASTA [Suspect]
     Indication: OSTEOPOROSIS
     Dosage: 5 MG, UNK
     Route: 042
     Dates: start: 20100504
  2. ACLASTA [Suspect]
     Dosage: 5 MG, UNK
     Route: 042
     Dates: start: 2011
  3. ACLASTA [Suspect]
     Dosage: 5 MG, UNK
     Route: 042
     Dates: start: 20121107
  4. GLUCOSAMINE [Concomitant]
     Indication: OSTEOARTHRITIS
     Dosage: DAILY
     Route: 048
     Dates: start: 2010

REACTIONS (7)
  - Urinary tract infection [Recovered/Resolved]
  - Pollakiuria [Recovering/Resolving]
  - Urine output decreased [Recovering/Resolving]
  - Dysuria [Recovering/Resolving]
  - Incontinence [Not Recovered/Not Resolved]
  - Pseudomonas infection [Unknown]
  - Anaemia [Recovering/Resolving]
